FAERS Safety Report 22274090 (Version 7)
Quarter: 2024Q4

REPORT INFORMATION
  Report Type: Spontaneous
  Country: US (occurrence: US)
  Receive Date: 20230502
  Receipt Date: 20241218
  Transmission Date: 20250114
  Serious: Yes (Other)
  Sender: PFIZER
  Company Number: US-PFIZER INC-PV202200045811

PATIENT
  Age: 77 Year
  Sex: Female

DRUGS (1)
  1. IBRANCE [Suspect]
     Active Substance: PALBOCICLIB
     Dosage: 100 MG, CYCLIC (TAKE ONE TABLET FOR 21 DAYS, ONE WEEK REST, REPEAT
     Route: 048

REACTIONS (3)
  - Neutropenia [Unknown]
  - Cataract [Unknown]
  - COVID-19 [Unknown]
